FAERS Safety Report 8081611-1 (Version None)
Quarter: 2012Q1

REPORT INFORMATION
  Report Type: 
  Country: None (occurrence: None)
  Receive Date: 20120130
  Receipt Date: 20120125
  Transmission Date: 20120608
  Serious: Yes (Death)
  Sender: FDA-Public Use
  Company Number: CHPA2011US018677

PATIENT
  Sex: Male

DRUGS (1)
  1. BENEFIBER UNKNOWN [Suspect]
     Indication: NUTRITIONAL SUPPORT
     Dosage: UNK, UNK
     Route: 048

REACTIONS (3)
  - NEOPLASM MALIGNANT [None]
  - THERAPEUTIC RESPONSE UNEXPECTED [None]
  - OFF LABEL USE [None]
